FAERS Safety Report 5508053-4 (Version None)
Quarter: 2007Q4

REPORT INFORMATION
  Report Type: 
  Country: None (occurrence: None)
  Receive Date: 20071106
  Receipt Date: 20071030
  Transmission Date: 20080405
  Serious: Yes (Other)
  Sender: FDA-Public Use
  Company Number: US-BRISTOL-MYERS SQUIBB COMPANY-13968136

PATIENT

DRUGS (1)
  1. IXEMPRA [Suspect]

REACTIONS (1)
  - ANAPHYLACTIC REACTION [None]
